FAERS Safety Report 9775189 (Version 2)
Quarter: 2013Q4

REPORT INFORMATION
  Report Type: Spontaneous
  Country: BR (occurrence: BR)
  Receive Date: 20131220
  Receipt Date: 20131220
  Transmission Date: 20140711
  Serious: Yes (Other)
  Sender: FDA-Public Use
  Company Number: BR-JNJFOC-20130610120

PATIENT
  Age: 30 Year
  Sex: Female
  Weight: 51 kg

DRUGS (8)
  1. REMICADE [Suspect]
     Indication: CROHN^S DISEASE
     Dosage: 21ST INFUSION
     Route: 042
     Dates: start: 20130603
  2. REMICADE [Suspect]
     Indication: CROHN^S DISEASE
     Route: 042
     Dates: start: 20131014
  3. REMICADE [Suspect]
     Indication: CROHN^S DISEASE
     Route: 042
     Dates: start: 201011
  4. NORMAL SALINE [Concomitant]
     Indication: MEDICATION DILUTION
     Route: 042
     Dates: start: 20131014
  5. NORMAL SALINE [Concomitant]
     Indication: MEDICATION DILUTION
     Route: 042
  6. HYDROCORTISONE [Concomitant]
     Indication: PREMEDICATION
     Route: 042
  7. DIPHENHYDRAMINE [Concomitant]
     Indication: PREMEDICATION
     Route: 042
  8. DIPHENHYDRAMINE [Concomitant]
     Indication: PREMEDICATION
     Route: 042
     Dates: start: 20131014

REACTIONS (11)
  - Tachycardia [Recovered/Resolved]
  - Chest discomfort [Recovered/Resolved]
  - Infusion related reaction [Recovering/Resolving]
  - Bradycardia [Recovering/Resolving]
  - Dyspnoea [Recovered/Resolved]
  - Throat tightness [Recovered/Resolved]
  - Blood pressure decreased [Recovering/Resolving]
  - Abdominal pain [Recovered/Resolved]
  - Ocular hyperaemia [Recovered/Resolved]
  - Lacrimation increased [Recovered/Resolved]
  - Cough [Recovered/Resolved]
